FAERS Safety Report 4625871-5 (Version None)
Quarter: 2005Q1

REPORT INFORMATION
  Report Type: 
  Country: None (occurrence: None)
  Receive Date: 20050330
  Receipt Date: 20050322
  Transmission Date: 20050727
  Serious: Yes (Hospitalization)
  Sender: FDA-Public Use
  Company Number: 2005UW04518

PATIENT
  Age: 44 Year
  Sex: Female
  Weight: 108 kg

DRUGS (1)
  1. SEROQUEL [Suspect]

REACTIONS (1)
  - PULMONARY EMBOLISM [None]
